FAERS Safety Report 24983888 (Version 2)
Quarter: 2025Q3

REPORT INFORMATION
  Report Type: Report from Study
  Country: US (occurrence: US)
  Receive Date: 20250219
  Receipt Date: 20250803
  Transmission Date: 20251021
  Serious: Yes (Other)
  Sender: ALEXION PHARMACEUTICALS
  Company Number: US-AstraZeneca-CH-00805995A

PATIENT
  Age: 15 Year
  Sex: Female

DRUGS (1)
  1. SELUMETINIB [Suspect]
     Active Substance: SELUMETINIB
     Indication: Neurofibromatosis

REACTIONS (10)
  - Unresponsive to stimuli [Unknown]
  - Pyrexia [Unknown]
  - Nasopharyngitis [Unknown]
  - Blood glucose increased [Unknown]
  - Headache [Unknown]
  - Disorientation [Unknown]
  - Dysphagia [Unknown]
  - Somnolence [Unknown]
  - Drooling [Unknown]
  - Speech disorder [Unknown]

NARRATIVE: CASE EVENT DATE: 20250201
